FAERS Safety Report 21237857 (Version 4)
Quarter: 2024Q1

REPORT INFORMATION
  Report Type: Other
  Country: CA (occurrence: None)
  Receive Date: 20220822
  Receipt Date: 20240328
  Transmission Date: 20240410
  Serious: No
  Sender: FDA-Public Use
  Company Number: CA-ROCHE-3165038

PATIENT
  Age: 43 Year
  Sex: Female

DRUGS (6)
  1. OCREVUS [Suspect]
     Active Substance: OCRELIZUMAB
     Indication: Relapsing-remitting multiple sclerosis
     Dosage: THEN 600 MG EVERY 6 MONTH
     Route: 042
     Dates: start: 20210729
  2. VENLAFAXINE [Concomitant]
     Active Substance: VENLAFAXINE HYDROCHLORIDE
  3. NAPROXEN [Concomitant]
     Active Substance: NAPROXEN
  4. ADVIL [Concomitant]
     Active Substance: IBUPROFEN
  5. LYSINE [Concomitant]
     Active Substance: LYSINE
  6. BIOTIN [Concomitant]
     Active Substance: BIOTIN

REACTIONS (5)
  - Infusion related reaction [Not Recovered/Not Resolved]
  - COVID-19 [Recovered/Resolved with Sequelae]
  - Spondylitis [Unknown]
  - Paraesthesia oral [Unknown]
  - Bone pain [Unknown]

NARRATIVE: CASE EVENT DATE: 20220101
